FAERS Safety Report 4930825-5 (Version None)
Quarter: 2006Q1

REPORT INFORMATION
  Report Type: 
  Country: None (occurrence: None)
  Receive Date: 20060227
  Receipt Date: 20060213
  Transmission Date: 20060701
  Serious: Yes (Disabling)
  Sender: FDA-Public Use
  Company Number: 2006020433

PATIENT
  Age: 82 Year
  Sex: Female
  Weight: 78.9259 kg

DRUGS (3)
  1. DILANTIN [Suspect]
     Indication: CONVULSION
     Dosage: 250 MG (2 IN 1 D), ORAL
     Route: 048
     Dates: start: 20040601
  2. ALTACE [Concomitant]
  3. CYANOCOBALAMIN [Concomitant]

REACTIONS (3)
  - ANTICONVULSANT DRUG LEVEL BELOW THERAPEUTIC [None]
  - FATIGUE [None]
  - SOMNOLENCE [None]
